FAERS Safety Report 25444129 (Version 1)
Quarter: 2025Q2

REPORT INFORMATION
  Report Type: Report from Study
  Country: US (occurrence: US)
  Receive Date: 20250617
  Receipt Date: 20250617
  Transmission Date: 20250716
  Serious: Yes (Other)
  Sender: TAKEDA
  Company Number: US-TAKEDA-2025TUS006405

PATIENT
  Sex: Female

DRUGS (2)
  1. IXAZOMIB [Suspect]
     Active Substance: IXAZOMIB
     Indication: Waldenstrom^s macroglobulinaemia
  2. IXAZOMIB [Suspect]
     Active Substance: IXAZOMIB

REACTIONS (9)
  - Pain [Unknown]
  - Mobility decreased [Unknown]
  - Brain fog [Unknown]
  - Abdominal distension [Unknown]
  - Product use issue [Unknown]
  - Product distribution issue [Unknown]
  - Feeling abnormal [Unknown]
  - Confusional state [Unknown]
  - Constipation [Unknown]
